FAERS Safety Report 24022369 (Version 1)
Quarter: 2024Q2

REPORT INFORMATION
  Report Type: Spontaneous
  Country: US (occurrence: US)
  Receive Date: 20240627
  Receipt Date: 20240627
  Transmission Date: 20240716
  Serious: No
  Sender: FDA-Public Use
  Company Number: US-ROCHE-3546932

PATIENT
  Age: 50 Year
  Sex: Female

DRUGS (1)
  1. ENTRECTINIB [Suspect]
     Active Substance: ENTRECTINIB
     Indication: Ganglioneuroma
     Dosage: 200 MG TO 600 MG
     Route: 048

REACTIONS (1)
  - Cardiotoxicity [Unknown]
